FAERS Safety Report 17117755 (Version 1)
Quarter: 2019Q4

REPORT INFORMATION
  Report Type: Spontaneous
  Country: SE (occurrence: SE)
  Receive Date: 20191205
  Receipt Date: 20191205
  Transmission Date: 20200122
  Serious: Yes (Life-Threatening, Hospitalization, Disabling)
  Sender: FDA-Public Use
  Company Number: SE-MYLANLABS-2019M1119887

PATIENT
  Age: 14 Year
  Sex: Male
  Weight: 55 kg

DRUGS (14)
  1. OLANZAPINE. [Suspect]
     Active Substance: OLANZAPINE
     Dosage: UNK
     Dates: start: 20170103, end: 20170129
  2. ABILIFY [Concomitant]
     Active Substance: ARIPIPRAZOLE
     Dosage: UNK
     Dates: start: 2019
  3. OLANZAPINE. [Suspect]
     Active Substance: OLANZAPINE
     Dosage: UNK
     Dates: start: 20161229, end: 20170102
  4. STESOLID [Concomitant]
     Active Substance: DIAZEPAM
     Dosage: 1 TABLETT VID BEHOV H?GST 2 TABLETTER PER DYGN.
  5. THERALEN [Concomitant]
     Active Substance: TRIMEPRAZINE
     Dosage: 0,25 ML VID BEHOV, MAX 1 ML PER DYGN
  6. OLANZAPINE. [Suspect]
     Active Substance: OLANZAPINE
     Dosage: F?R INSATT EXTRA 2,5 MG OLANZAPIN ATT TA VID BEHOV
     Dates: start: 20160703
  7. OLANZAPINE. [Suspect]
     Active Substance: OLANZAPINE
     Dosage: UNK
     Dates: start: 20161225, end: 20161228
  8. ABILIFY [Concomitant]
     Active Substance: ARIPIPRAZOLE
     Dosage: UNK
     Dates: start: 20160620, end: 20161220
  9. MELATONIN [Concomitant]
     Active Substance: MELATONIN
     Dosage: 5 MILLIGRAM, QD
  10. RISPERIDONE. [Concomitant]
     Active Substance: RISPERIDONE
     Dosage: UNK
     Dates: start: 20160628, end: 20160703
  11. OLANZAPINE. [Suspect]
     Active Substance: OLANZAPINE
     Indication: PSYCHOTIC SYMPTOM
     Dosage: UNK
     Dates: start: 20160702, end: 20161224
  12. ABILIFY [Concomitant]
     Active Substance: ARIPIPRAZOLE
     Dosage: UNK
     Dates: start: 20161221, end: 2019
  13. NOZINAN                            /00038602/ [Concomitant]
     Active Substance: LEVOMEPROMAZINE MALEATE
     Dosage: UNK
     Dates: start: 20160620, end: 20160701
  14. NOZINAN                            /00038602/ [Concomitant]
     Active Substance: LEVOMEPROMAZINE MALEATE
     Dosage: UNK
     Dates: start: 20160702, end: 20160703

REACTIONS (7)
  - Back disorder [Recovered/Resolved with Sequelae]
  - Weight increased [Recovered/Resolved]
  - Confusional state [Recovered/Resolved with Sequelae]
  - Musculoskeletal stiffness [Recovered/Resolved with Sequelae]
  - Mydriasis [Recovered/Resolved with Sequelae]
  - Staring [Recovered/Resolved with Sequelae]
  - Product prescribing error [Recovered/Resolved with Sequelae]

NARRATIVE: CASE EVENT DATE: 201607
